FAERS Safety Report 8381610 (Version 6)
Quarter: 2013Q1

REPORT INFORMATION
  Report Type: Spontaneous
  Country: US (occurrence: US)
  Receive Date: 20120131
  Receipt Date: 20130204
  Transmission Date: 20140127
  Serious: Yes (Hospitalization, Other)
  Sender: FDA-Public Use
  Company Number: US-009507513-1201USA04014

PATIENT
  Sex: Female
  Weight: 54.43 kg

DRUGS (10)
  1. FOSAMAX [Suspect]
     Indication: OSTEOPOROSIS
     Dosage: 70 MG, QW
     Route: 048
     Dates: start: 200003, end: 201007
  2. ALENDRONATE SODIUM [Suspect]
     Dosage: 70 MG, UNK
     Dates: start: 20090404
  3. MK-9359 [Concomitant]
     Dates: start: 1996
  4. PROTONIX [Concomitant]
     Dates: start: 1990
  5. ZETIA [Concomitant]
     Route: 048
  6. ZOCOR [Concomitant]
     Route: 048
  7. CENTRUM (MINERALS (UNSPECIFIED) (+) VITAMINS (UNSPECIFIED)) [Concomitant]
     Dosage: 1 DF, QD
     Dates: start: 1970
  8. CENTRUM SILVER [Concomitant]
     Dosage: 1 DF, QD
     Dates: start: 1970
  9. CALCIUM (UNSPECIFIED) [Concomitant]
     Dates: start: 1970
  10. VITAMIN D (UNSPECIFIED) [Concomitant]
     Dates: start: 1970

REACTIONS (32)
  - Femur fracture [Unknown]
  - Femur fracture [Unknown]
  - Open reduction of fracture [Unknown]
  - Atelectasis [Unknown]
  - Chronic obstructive pulmonary disease [Not Recovered/Not Resolved]
  - Urinary incontinence [Unknown]
  - Hypoalbuminaemia [Unknown]
  - Hyperchromic anaemia [Unknown]
  - Reversible airways obstruction [Unknown]
  - Vitamin D decreased [Unknown]
  - Hypothyroidism [Unknown]
  - Depression [Unknown]
  - Emphysema [Unknown]
  - Mitral valve prolapse [Unknown]
  - Night sweats [Unknown]
  - Osteopenia [Unknown]
  - Application site atrophy [Unknown]
  - Tooth disorder [Unknown]
  - Rotator cuff syndrome [Unknown]
  - Exostosis [Unknown]
  - Bursitis [Unknown]
  - Exostosis [Unknown]
  - Intervertebral disc degeneration [Unknown]
  - Tendon disorder [Unknown]
  - Fall [Unknown]
  - Osteoarthritis [Unknown]
  - Endodontic procedure [Unknown]
  - Asthenia [Unknown]
  - Arthralgia [Unknown]
  - Gastritis [Unknown]
  - Vomiting [Unknown]
  - Nausea [Unknown]
